FAERS Safety Report 9527740 (Version 4)
Quarter: 2013Q4

REPORT INFORMATION
  Report Type: Spontaneous
  Country: US (occurrence: None)
  Receive Date: 20130913
  Receipt Date: 20131121
  Transmission Date: 20140711
  Serious: Yes (Hospitalization, Other)
  Sender: FDA-Public Use
  Company Number: 2013SA071077

PATIENT
  Age: 38 Year
  Sex: Male
  Weight: 88.45 kg

DRUGS (3)
  1. GOLD BOND POWDER SPRAY FRESH [Suspect]
     Indication: HYPERHIDROSIS
     Dates: start: 201306, end: 201306
  2. LOSARTAN [Concomitant]
  3. AMLODIPINE [Concomitant]

REACTIONS (11)
  - Skin irritation [None]
  - Burning sensation [None]
  - Pruritus [None]
  - Genital discomfort [None]
  - Abscess [None]
  - Groin abscess [None]
  - Hypertension [None]
  - Testicular abscess [None]
  - Subcutaneous abscess [None]
  - Product quality issue [None]
  - Scar [None]
